FAERS Safety Report 8453429-9 (Version None)
Quarter: 2012Q2

REPORT INFORMATION
  Report Type: 
  Country: None (occurrence: None)
  Receive Date: 20120620
  Receipt Date: 20120516
  Transmission Date: 20120825
  Serious: No
  Sender: FDA-Public Use
  Company Number: US-VERTEX PHARMACEUTICALS INC.-AE-2012-007362

PATIENT
  Sex: Male
  Weight: 79.45 kg

DRUGS (5)
  1. EFFEXOR XR [Concomitant]
     Indication: ANXIETY
  2. EFFEXOR XR [Concomitant]
     Indication: DEPRESSION
  3. RIBAVIRIN [Concomitant]
     Indication: HEPATITIS C
     Dates: start: 20120418
  4. INCIVEK [Suspect]
     Indication: HEPATITIS C
     Route: 048
     Dates: start: 20120418
  5. PEGASYS [Concomitant]
     Indication: HEPATITIS C
     Dates: start: 20120418

REACTIONS (4)
  - FATIGUE [None]
  - CHEST DISCOMFORT [None]
  - SOMNOLENCE [None]
  - ASTHENIA [None]
